FAERS Safety Report 11269396 (Version 1)
Quarter: 2015Q3

REPORT INFORMATION
  Report Type: Spontaneous
  Country: US (occurrence: US)
  Receive Date: 20150714
  Receipt Date: 20150714
  Transmission Date: 20151125
  Serious: Yes (Hospitalization, Other)
  Sender: FDA-Public Use
  Company Number: US-PAR PHARMACEUTICAL, INC-1997UW41203

PATIENT
  Age: 66 Year
  Sex: Male
  Weight: 109.6 kg

DRUGS (13)
  1. ALLEGRA [Concomitant]
     Active Substance: FEXOFENADINE HYDROCHLORIDE
     Indication: UNEVALUABLE EVENT
     Dosage: ONCE
     Route: 048
     Dates: start: 19970416, end: 19970416
  2. CEFAZOLIN SODIUM. [Concomitant]
     Active Substance: CEFAZOLIN SODIUM
     Indication: UNEVALUABLE EVENT
     Dosage: 3 DAYS
     Dates: start: 19970414, end: 19970417
  3. METFORMIN HYDROCHLORIDE. [Concomitant]
     Active Substance: METFORMIN HYDROCHLORIDE
     Indication: UNEVALUABLE EVENT
     Dosage: N/A
  4. CROMOLYN SODIUM. [Concomitant]
     Active Substance: CROMOLYN SODIUM
     Indication: UNEVALUABLE EVENT
     Dosage: N/A
     Dates: start: 19970415
  5. SIMVASTATIN. [Concomitant]
     Active Substance: SIMVASTATIN
     Indication: UNEVALUABLE EVENT
     Dosage: 4 DAYS
     Route: 048
     Dates: start: 19970415, end: 19970419
  6. FLUTICASONE PROPIONATE NASAL SPRAY [Concomitant]
     Active Substance: FLUTICASONE PROPIONATE
     Indication: UNEVALUABLE EVENT
     Dosage: 7 DAYS
     Route: 055
     Dates: start: 19970415, end: 19970422
  7. FUROSEMIDE. [Concomitant]
     Active Substance: FUROSEMIDE
     Indication: UNEVALUABLE EVENT
     Dosage: N/A
  8. THEOPHYLLINE ANHYDROUS SUSTAINED RELEASE [Concomitant]
     Indication: UNEVALUABLE EVENT
     Dosage: N/A
     Route: 048
     Dates: start: 19970415
  9. ACCOLATE [Suspect]
     Active Substance: ZAFIRLUKAST
     Indication: CHRONIC OBSTRUCTIVE PULMONARY DISEASE
     Dosage: 2 DAYS
     Route: 048
     Dates: start: 19970415, end: 19970416
  10. DILTIAZEM [Concomitant]
     Active Substance: DILTIAZEM
     Indication: UNEVALUABLE EVENT
     Dosage: 3 DAYS
     Route: 048
     Dates: start: 19970415, end: 19970418
  11. FLUNISOLIDE. [Concomitant]
     Active Substance: FLUNISOLIDE
     Indication: UNEVALUABLE EVENT
     Dosage: N/A
     Dates: start: 19970415
  12. ALBUTEROL. [Concomitant]
     Active Substance: ALBUTEROL
     Indication: UNEVALUABLE EVENT
     Dosage: N/A
     Dates: start: 19970414
  13. PRINIVIL [Concomitant]
     Active Substance: LISINOPRIL
     Indication: UNEVALUABLE EVENT
     Dosage: 2 DAYS
     Route: 048
     Dates: start: 19970415, end: 19970416

REACTIONS (3)
  - Renal impairment [Recovered/Resolved with Sequelae]
  - Cellulitis [None]
  - Pyrexia [None]

NARRATIVE: CASE EVENT DATE: 19970415
